FAERS Safety Report 9100934 (Version 2)
Quarter: 2013Q1

REPORT INFORMATION
  Report Type: Spontaneous
  Country: US (occurrence: US)
  Receive Date: 20130214
  Receipt Date: 20130227
  Transmission Date: 20140127
  Serious: Yes (Hospitalization)
  Sender: FDA-Public Use
  Company Number: US-PFIZER INC-2013056084

PATIENT
  Sex: Male

DRUGS (2)
  1. XANAX [Suspect]
     Dosage: UNK
  2. OXYCONTIN [Suspect]
     Dosage: UNK

REACTIONS (2)
  - Delusional perception [Recovering/Resolving]
  - Paranoia [Recovering/Resolving]
